FAERS Safety Report 6417273-6 (Version None)
Quarter: 2009Q4

REPORT INFORMATION
  Report Type: 
  Country: None (occurrence: None)
  Receive Date: 20091028
  Receipt Date: 20091013
  Transmission Date: 20100525
  Serious: Yes (Other)
  Sender: FDA-Public Use
  Company Number: PHHY2009DE44798

PATIENT
  Age: 58 Year
  Sex: Female

DRUGS (1)
  1. ESTRADERM [Suspect]
     Dosage: UNK
     Route: 062

REACTIONS (1)
  - CEREBRAL HAEMORRHAGE [None]
